FAERS Safety Report 9453146 (Version 3)
Quarter: 2015Q1

REPORT INFORMATION
  Report Type: Spontaneous
  Country: FR (occurrence: None)
  Receive Date: 20130730
  Receipt Date: 20150303
  Transmission Date: 20150721
  Serious: Yes (Life-Threatening, Hospitalization)
  Sender: FDA-Public Use
  Company Number: GAM-151-13-FR

PATIENT
  Age: 79 Year
  Sex: Male

DRUGS (4)
  1. MELPHALAN [Concomitant]
     Active Substance: MELPHALAN
  2. OCTAGAM IMMUNE GLOBULIN (HUMAN) [Suspect]
     Active Substance: HUMAN IMMUNOGLOBULIN G
     Indication: IMMUNODEFICIENCY COMMON VARIABLE
     Route: 042
     Dates: start: 20130515, end: 20130515
  3. PREDNISOLONE. [Concomitant]
     Active Substance: PREDNISOLONE
  4. THALIDOMIDE [Concomitant]
     Active Substance: THALIDOMIDE

REACTIONS (10)
  - Klebsiella infection [None]
  - Condition aggravated [None]
  - Lung disorder [None]
  - Fluid overload [None]
  - Dyspnoea [None]
  - Respiratory distress [None]
  - Anaemia [None]
  - Pulmonary oedema [None]
  - Sepsis [None]
  - Plasma cell myeloma [None]

NARRATIVE: CASE EVENT DATE: 201305
